FAERS Safety Report 6019446-3 (Version None)
Quarter: 2008Q4

REPORT INFORMATION
  Report Type: 
  Country: None (occurrence: None)
  Receive Date: 20081224
  Receipt Date: 20081219
  Transmission Date: 20090506
  Serious: Yes (Other)
  Sender: FDA-Public Use
  Company Number: US-ELI_LILLY_AND_COMPANY-US200812005147

PATIENT
  Age: 35 Year
  Sex: Male

DRUGS (2)
  1. CIALIS [Suspect]
     Dosage: UNK, AS NEEDED
     Route: 065
  2. AZOR [Concomitant]
     Dosage: UNK, UNKNOWN
     Route: 065

REACTIONS (1)
  - SWOLLEN TONGUE [None]
